FAERS Safety Report 13702337 (Version 1)
Quarter: 2017Q2

REPORT INFORMATION
  Report Type: Report from Study
  Country: None (occurrence: US)
  Receive Date: 20170629
  Receipt Date: 20170629
  Transmission Date: 20170830
  Serious: No
  Sender: FDA-Public Use
  Company Number: US-IPSEN BIOPHARMACEUTICALS, INC.-2015-5553

PATIENT
  Sex: Male
  Weight: 34.3 kg

DRUGS (3)
  1. INCRELEX [Suspect]
     Active Substance: MECASERMIN
     Dosage: 74 UG/KG
     Route: 058
     Dates: start: 20150610
  2. SYNTHROID [Suspect]
     Active Substance: LEVOTHYROXINE SODIUM
     Indication: PRODUCT USED FOR UNKNOWN INDICATION
     Dosage: NOT REPORTED
     Route: 065
  3. INCRELEX [Suspect]
     Active Substance: MECASERMIN
     Indication: GROWTH HORMONE DEFICIENCY
     Dosage: 54 UG/KG
     Route: 058
     Dates: start: 20141226, end: 20150609

REACTIONS (1)
  - Drug ineffective [Unknown]
